FAERS Safety Report 9100240 (Version 6)
Quarter: 2013Q4

REPORT INFORMATION
  Report Type: Report from Study
  Country: DE (occurrence: DE)
  Receive Date: 20130215
  Receipt Date: 20131217
  Transmission Date: 20140711
  Serious: Yes (Hospitalization)
  Sender: FDA-Public Use
  Company Number: DE-ROCHE-1153736

PATIENT
  Age: 52 Year
  Sex: Female
  Weight: 80 kg

DRUGS (5)
  1. VEMURAFENIB [Suspect]
     Indication: MALIGNANT MELANOMA
     Dosage: LAST DOSE PRIOR TO SAE: 02/NOV/2012
     Route: 048
     Dates: start: 20120127, end: 20121102
  2. VEMURAFENIB [Suspect]
     Route: 048
     Dates: start: 20121105
  3. IBUPROFEN [Concomitant]
     Dosage: DAILY DOSE
     Route: 065
     Dates: start: 20121004
  4. DICLOFENAC [Concomitant]
     Route: 065
     Dates: start: 20120907, end: 20121004
  5. TILIDIN [Concomitant]
     Dosage: 10 DROPS
     Route: 065
     Dates: start: 20121004

REACTIONS (1)
  - Arrhythmia [Recovered/Resolved]
